FAERS Safety Report 12211066 (Version 1)
Quarter: 2016Q1

REPORT INFORMATION
  Report Type: Spontaneous
  Country: US (occurrence: None)
  Receive Date: 20160324
  Receipt Date: 20160324
  Transmission Date: 20160526
  Serious: Yes (Hospitalization)
  Sender: FDA-Public Use
  Company Number: None

PATIENT
  Age: 82 Year
  Sex: Male
  Weight: 85.3 kg

DRUGS (1)
  1. TRAZODONE [Suspect]
     Active Substance: TRAZODONE HYDROCHLORIDE
     Indication: INSOMNIA
     Dosage: BEDTIME
     Route: 048
     Dates: start: 20151113, end: 20151119

REACTIONS (8)
  - Paraesthesia [None]
  - Serotonin syndrome [None]
  - Asthenia [None]
  - Tremor [None]
  - Wheezing [None]
  - Rhonchi [None]
  - Hypoaesthesia [None]
  - Anxiety [None]

NARRATIVE: CASE EVENT DATE: 20151123
